FAERS Safety Report 10681650 (Version 1)
Quarter: 2014Q4

REPORT INFORMATION
  Report Type: Spontaneous
  Country: GB (occurrence: GB)
  Receive Date: 20141230
  Receipt Date: 20141230
  Transmission Date: 20150529
  Serious: Yes (Hospitalization)
  Sender: FDA-Public Use
  Company Number: GB-TEVA-530952ISR

PATIENT
  Age: 29 Year
  Sex: Female
  Weight: 53.8 kg

DRUGS (4)
  1. METOCLOPRAMIDE. [Suspect]
     Active Substance: METOCLOPRAMIDE
     Indication: VOMITING
     Dates: start: 20141210
  2. ARRY-438162 [Suspect]
     Active Substance: BINIMETINIB
     Indication: OVARIAN CANCER
     Dosage: 90 MILLIGRAM DAILY; LAST DOSE OF MEK162 PRIOR TO EVENT ONSET ON 25-NOV-2014
     Route: 048
     Dates: start: 20141022, end: 20141105
  3. LEVOMEPROMAZINE [Concomitant]
     Active Substance: LEVOMEPROMAZINE
     Indication: VOMITING
     Dates: start: 20141128
  4. ARRY-438162 [Suspect]
     Active Substance: BINIMETINIB
     Dosage: 60 MILLIGRAM DAILY; LAST DOSE OF MEK162 PRIOR TO EVENT ONSET ON 25-NOV-2014
     Route: 048
     Dates: start: 20141119, end: 20141125

REACTIONS (1)
  - Abdominal pain [Not Recovered/Not Resolved]

NARRATIVE: CASE EVENT DATE: 20141212
